FAERS Safety Report 7103589-7 (Version None)
Quarter: 2010Q4

REPORT INFORMATION
  Report Type: 
  Country: None (occurrence: None)
  Receive Date: 20101115
  Receipt Date: 20101110
  Transmission Date: 20110411
  Serious: Yes (Other)
  Sender: FDA-Public Use
  Company Number: GXBR2010US01915

PATIENT
  Sex: Female

DRUGS (2)
  1. METHIMAZOLE [Suspect]
     Dosage: 5 MG, QD
     Route: 048
  2. ACE INHIBITOR NOS [Suspect]
     Indication: HYPERTENSION

REACTIONS (1)
  - HEPATIC FAILURE [None]
